FAERS Safety Report 4369117-4 (Version None)
Quarter: 2004Q2

REPORT INFORMATION
  Report Type: 
  Country: None (occurrence: None)
  Receive Date: 20040527
  Receipt Date: 20040518
  Transmission Date: 20050107
  Serious: Yes (Other)
  Sender: FDA-Public Use
  Company Number: 2004033431

PATIENT
  Sex: Female

DRUGS (1)
  1. NEURONTIN [Suspect]
     Indication: ILL-DEFINED DISORDER
     Dosage: ORAL
     Route: 048
     Dates: start: 19990101, end: 19990201

REACTIONS (9)
  - ADRENAL NEOPLASM [None]
  - CARDIAC FAILURE CONGESTIVE [None]
  - DIZZINESS [None]
  - DYSPNOEA [None]
  - EMOTIONAL DISTRESS [None]
  - FEELING ABNORMAL [None]
  - FEELING DRUNK [None]
  - OEDEMA PERIPHERAL [None]
  - WEIGHT INCREASED [None]
